FAERS Safety Report 25440232 (Version 1)
Quarter: 2025Q2

REPORT INFORMATION
  Report Type: Spontaneous
  Country: US (occurrence: None)
  Receive Date: 20250613
  Receipt Date: 20250613
  Transmission Date: 20250716
  Serious: Yes (Hospitalization)
  Sender: FDA-CTU
  Company Number: None

PATIENT
  Age: 60 Year
  Sex: Male
  Weight: 64.4 kg

DRUGS (3)
  1. UZEDY [Suspect]
     Active Substance: RISPERIDONE
     Indication: Schizophrenia
     Route: 058
     Dates: start: 20250606
  2. BENZTROPINE [Concomitant]
     Active Substance: BENZTROPINE
     Dates: start: 20250605, end: 20250606
  3. BENZTROPINE [Concomitant]
     Active Substance: BENZTROPINE
     Dates: start: 20250610

REACTIONS (4)
  - Torticollis [None]
  - Hypophagia [None]
  - Extrapyramidal disorder [None]
  - Intentional dose omission [None]

NARRATIVE: CASE EVENT DATE: 20250610
